FAERS Safety Report 10143738 (Version 1)
Quarter: 2014Q2

REPORT INFORMATION
  Report Type: Spontaneous
  Country: FR (occurrence: FR)
  Receive Date: 20140430
  Receipt Date: 20140430
  Transmission Date: 20141212
  Serious: Yes (Other)
  Sender: FDA-Public Use
  Company Number: FR-ACTAVIS-2014-08302

PATIENT
  Age: 39 Year
  Sex: Male

DRUGS (8)
  1. RISPERIDONE (UNKNOWN) [Suspect]
     Indication: BIPOLAR I DISORDER
     Dosage: 1 MG, DAILY
     Route: 065
  2. RISPERIDONE (UNKNOWN) [Suspect]
     Dosage: 2 MG, DAILY
     Route: 065
  3. RISPERIDONE (UNKNOWN) [Suspect]
     Dosage: 4 MG, DAILY
     Route: 065
  4. RISPERIDONE (UNKNOWN) [Suspect]
     Dosage: 6 MG, DAILY
     Route: 065
  5. BACLOFEN (UNKNOWN) [Suspect]
     Indication: ALCOHOLISM
     Dosage: 20 MG, DAILY
     Route: 065
  6. BACLOFEN (UNKNOWN) [Suspect]
     Dosage: 180 MG, DAILY
     Route: 065
  7. BACLOFEN (UNKNOWN) [Suspect]
     Dosage: 240 MG, DAILY
     Route: 065
  8. LITHIUM CARBONATE (UNKNOWN) [Suspect]
     Indication: AFFECTIVE DISORDER
     Dosage: 1200 MG, DAILY
     Route: 065

REACTIONS (6)
  - Blood triglycerides increased [Recovered/Resolved]
  - Hyponatraemia [Unknown]
  - Weight increased [Unknown]
  - Blood cholesterol increased [Unknown]
  - Overdose [Unknown]
  - Off label use [Unknown]
